FAERS Safety Report 8071292-5 (Version None)
Quarter: 2012Q1

REPORT INFORMATION
  Report Type: 
  Country: None (occurrence: None)
  Receive Date: 20120125
  Receipt Date: 20120119
  Transmission Date: 20120608
  Serious: Yes (Hospitalization)
  Sender: FDA-Public Use
  Company Number: PHHO2012US001338

PATIENT
  Sex: Female

DRUGS (3)
  1. LISINOPRIL [Suspect]
  2. GILENYA [Suspect]
     Indication: RELAPSING-REMITTING MULTIPLE SCLEROSIS
     Dosage: 0.5 MG, QD
     Route: 048
     Dates: start: 20110901, end: 20120119
  3. IBUPROFEN [Suspect]

REACTIONS (2)
  - URINARY TRACT INFECTION [None]
  - RENAL FAILURE ACUTE [None]
